FAERS Safety Report 4378324-6 (Version None)
Quarter: 2004Q2

REPORT INFORMATION
  Report Type: 
  Country: None (occurrence: None)
  Receive Date: 20040609
  Receipt Date: 20040525
  Transmission Date: 20050107
  Serious: Yes (Death, Hospitalization)
  Sender: FDA-Public Use
  Company Number: USA040568456

PATIENT
  Age: 69 Year
  Sex: Female
  Weight: 64 kg

DRUGS (2)
  1. FORTEO [Suspect]
     Indication: OSTEOPOROSIS
     Dates: start: 20030201, end: 20040101
  2. PREDNISONE [Concomitant]

REACTIONS (7)
  - DECREASED APPETITE [None]
  - DIALYSIS [None]
  - DYSGEUSIA [None]
  - MULTIPLE MYELOMA [None]
  - RENAL FAILURE [None]
  - SENSORY DISTURBANCE [None]
  - WEIGHT DECREASED [None]
